FAERS Safety Report 23438314 (Version 1)
Quarter: 2024Q1

REPORT INFORMATION
  Report Type: Other
  Country: US (occurrence: US)
  Receive Date: 20240124
  Receipt Date: 20240124
  Transmission Date: 20240410
  Serious: No
  Sender: FDA-Public Use
  Company Number: US-TRAVERE-2024TVT00037

PATIENT
  Age: 26 Year
  Sex: Male

DRUGS (6)
  1. CHOLBAM [Suspect]
     Active Substance: CHOLIC ACID
     Indication: Refsum^s disease
     Route: 048
     Dates: start: 20230427
  2. CLONIDINE [Concomitant]
     Active Substance: CLONIDINE
  3. HYDROCORTISONE [Concomitant]
     Active Substance: HYDROCORTISONE
  4. VALTOCO [Concomitant]
     Active Substance: DIAZEPAM
  5. DIETARY SUPPLEMENT [Concomitant]
     Active Substance: DIETARY SUPPLEMENT
  6. KLONOPIN [Concomitant]
     Active Substance: CLONAZEPAM

REACTIONS (1)
  - Bile acids increased [Unknown]
